FAERS Safety Report 4603569-7 (Version None)
Quarter: 2005Q1

REPORT INFORMATION
  Report Type: 
  Country: None (occurrence: None)
  Receive Date: 20050310
  Receipt Date: 20050302
  Transmission Date: 20050727
  Serious: Yes (Death, Hospitalization)
  Sender: FDA-Public Use
  Company Number: 200510819FR

PATIENT
  Age: 60 Year
  Sex: Female

DRUGS (2)
  1. TAXOTERE [Suspect]
     Indication: BREAST CANCER
     Route: 042
  2. EPIRUBICIN [Suspect]
     Indication: BREAST CANCER
     Route: 042

REACTIONS (3)
  - BONE MARROW DEPRESSION [None]
  - DYSPNOEA [None]
  - FLUID RETENTION [None]
